FAERS Safety Report 16787867 (Version 1)
Quarter: 2019Q3

REPORT INFORMATION
  Report Type: Spontaneous
  Country: US (occurrence: US)
  Receive Date: 20190909
  Receipt Date: 20190909
  Transmission Date: 20191005
  Serious: Yes (Death)
  Sender: FDA-Public Use
  Company Number: US-ALSI-201900374

PATIENT
  Age: 59 Year
  Sex: Female

DRUGS (1)
  1. OXYGEN. [Suspect]
     Active Substance: OXYGEN
     Indication: EMPHYSEMA
     Route: 055

REACTIONS (2)
  - Accident [Fatal]
  - Death [Fatal]
